FAERS Safety Report 8953425 (Version 1)
Quarter: 2012Q4

REPORT INFORMATION
  Report Type: 
  Country: US (occurrence: US)
  Receive Date: 20121206
  Receipt Date: 20121206
  Transmission Date: 20130627
  Serious: Yes (Hospitalization)
  Sender: FDA-Public Use
  Company Number: US-GLAXOSMITHKLINE-A0775114A

PATIENT
  Age: 48 Year
  Sex: Male
  Weight: 99.5 kg

DRUGS (2)
  1. AVANDIA [Suspect]
     Indication: DIABETES MELLITUS
     Dosage: 4MG Twice per day
     Route: 048
     Dates: start: 1999, end: 2005
  2. AVANDAMET [Suspect]
     Indication: DIABETES MELLITUS
     Route: 048
     Dates: start: 2005, end: 2006

REACTIONS (5)
  - Acute coronary syndrome [Not Recovered/Not Resolved]
  - Cardiac failure congestive [Unknown]
  - Renal injury [Unknown]
  - Acute myocardial infarction [Unknown]
  - Ischaemic cardiomyopathy [Unknown]
